FAERS Safety Report 23547283 (Version 1)
Quarter: 2024Q1

REPORT INFORMATION
  Report Type: Spontaneous
  Country: CA (occurrence: CA)
  Receive Date: 20240221
  Receipt Date: 20240221
  Transmission Date: 20240409
  Serious: Yes (Other)
  Sender: FDA-Public Use
  Company Number: None

PATIENT
  Age: 54 Year
  Sex: Female
  Weight: 119 kg

DRUGS (1)
  1. PACLITAXEL [Suspect]
     Active Substance: PACLITAXEL
     Indication: Endometrial cancer
     Dosage: SOLUTION INTRAVENOUS, 1 EVERY 3 WEEKS
     Route: 042

REACTIONS (2)
  - Flushing [Recovered/Resolved]
  - Musculoskeletal discomfort [Recovered/Resolved]
